FAERS Safety Report 4950787-4 (Version None)
Quarter: 2006Q1

REPORT INFORMATION
  Report Type: 
  Country: None (occurrence: None)
  Receive Date: 20060322
  Receipt Date: 20060315
  Transmission Date: 20060701
  Serious: Yes (Hospitalization)
  Sender: FDA-Public Use
  Company Number: US-BRISTOL-MYERS SQUIBB COMPANY-13316419

PATIENT
  Age: 68 Year
  Sex: Female

DRUGS (17)
  1. CETUXIMAB [Suspect]
     Indication: NON-SMALL CELL LUNG CANCER
     Route: 042
     Dates: start: 20060303, end: 20060303
  2. CARBOPLATIN [Suspect]
     Indication: NON-SMALL CELL LUNG CANCER
     Route: 042
     Dates: start: 20060303, end: 20060303
  3. DOCETAXEL [Suspect]
     Indication: NON-SMALL CELL LUNG CANCER
     Route: 042
     Dates: start: 20060303, end: 20060303
  4. DECADRON SRC [Concomitant]
     Dates: start: 20060303, end: 20060303
  5. KYTRIL [Concomitant]
     Dates: start: 20060303, end: 20060303
  6. TAGAMET [Concomitant]
     Dates: start: 20060303, end: 20060303
  7. ASPIRIN [Concomitant]
     Dates: start: 20051223
  8. DURAGESIC-100 [Concomitant]
     Dates: start: 20051223
  9. LEXAPRO [Concomitant]
     Dates: start: 20060106
  10. MEGACE [Concomitant]
     Dates: start: 20060106
  11. NEXIUM [Concomitant]
     Dates: start: 20051223
  12. PLAVIX [Concomitant]
     Dates: start: 20051223
  13. SINEMET [Concomitant]
     Dates: start: 20051223
  14. VICODIN [Concomitant]
     Dates: start: 20060106
  15. ZESTRIL [Concomitant]
     Dates: start: 20051223
  16. ZETIA [Concomitant]
     Dates: start: 20051223
  17. ZOCOR [Concomitant]
     Dates: start: 20051223

REACTIONS (7)
  - BLOOD CALCIUM DECREASED [None]
  - BLOOD POTASSIUM DECREASED [None]
  - DEHYDRATION [None]
  - DIARRHOEA [None]
  - DIZZINESS [None]
  - FATIGUE [None]
  - HAEMATOCRIT DECREASED [None]
